FAERS Safety Report 6801424-5 (Version None)
Quarter: 2010Q2

REPORT INFORMATION
  Report Type: 
  Country: None (occurrence: None)
  Receive Date: 20100629
  Receipt Date: 20100622
  Transmission Date: 20101027
  Serious: Yes (Death)
  Sender: FDA-Public Use
  Company Number: B0661775A

PATIENT
  Sex: Male

DRUGS (4)
  1. ARIXTRA [Suspect]
     Indication: DEEP VEIN THROMBOSIS
     Dosage: 7.5MG PER DAY
     Route: 058
     Dates: start: 20091201, end: 20100509
  2. KARDEGIC [Suspect]
     Indication: DRUG USE FOR UNKNOWN INDICATION
     Dosage: 75MG PER DAY
     Route: 048
     Dates: end: 20100509
  3. SERTRALINE HCL [Suspect]
     Indication: DRUG USE FOR UNKNOWN INDICATION
     Dosage: 25MG PER DAY
     Route: 048
     Dates: start: 20100401, end: 20100509
  4. ZOLPIDEM [Concomitant]

REACTIONS (7)
  - ALTERED STATE OF CONSCIOUSNESS [None]
  - COMA SCALE ABNORMAL [None]
  - EPISTAXIS [None]
  - HAEMORRHAGIC STROKE [None]
  - INCORRECT DRUG ADMINISTRATION DURATION [None]
  - MYDRIASIS [None]
  - PARALYSIS [None]
